APPROVED DRUG PRODUCT: OMEPRAZOLE
Active Ingredient: OMEPRAZOLE
Strength: 10MG
Dosage Form/Route: CAPSULE, DELAYED REL PELLETS;ORAL
Application: A075347 | Product #001 | TE Code: AB
Applicant: ACTAVIS LABORATORIES FL INC
Approved: May 30, 2008 | RLD: No | RS: No | Type: RX